FAERS Safety Report 10379630 (Version 2)
Quarter: 2014Q3

REPORT INFORMATION
  Report Type: Report from Study
  Country: MX (occurrence: MX)
  Receive Date: 20140812
  Receipt Date: 20140826
  Transmission Date: 20150326
  Serious: Yes (Other)
  Sender: FDA-Public Use
  Company Number: PHHY2014MX099752

PATIENT
  Age: 81 Year
  Sex: Female

DRUGS (3)
  1. ELANTAN [Concomitant]
     Active Substance: ISOSORBIDE MONONITRATE
     Indication: HYPERTENSION
     Dosage: 3 DF, DAILY
     Dates: start: 2008
  2. GLIMETAL [Concomitant]
     Indication: DIABETES MELLITUS
     Dosage: 0.5 DF, BID
     Dates: start: 2008
  3. ACLASTA [Suspect]
     Active Substance: ZOLEDRONIC ACID
     Indication: SPINAL PAIN
     Dosage: 5 MG/100 ML ANNUALLY
     Route: 042
     Dates: start: 201204

REACTIONS (5)
  - Fall [Recovered/Resolved]
  - Osteoporosis [Not Recovered/Not Resolved]
  - Lumbar vertebral fracture [Not Recovered/Not Resolved]
  - Pain [Not Recovered/Not Resolved]
  - Angina pectoris [Not Recovered/Not Resolved]

NARRATIVE: CASE EVENT DATE: 201407
